FAERS Safety Report 8325066 (Version 2)
Quarter: 2013Q2

REPORT INFORMATION
  Report Type: Spontaneous
  Country: CA (occurrence: CA)
  Receive Date: 20120106
  Receipt Date: 20130521
  Transmission Date: 20140414
  Serious: Yes (Other)
  Sender: FDA-Public Use
  Company Number: CA-JNJFOC-20120100570

PATIENT
  Age: 27 Year
  Sex: Male
  Weight: 111 kg

DRUGS (2)
  1. REMICADE [Suspect]
     Indication: CROHN^S DISEASE
     Route: 042
     Dates: start: 20100809
  2. FLAGYL [Concomitant]
     Dosage: DOSE BELIEVED TO BE 500MG TABS
     Route: 065

REACTIONS (1)
  - Tonsillar hypertrophy [Unknown]
